FAERS Safety Report 17471409 (Version 1)
Quarter: 2020Q1

REPORT INFORMATION
  Report Type: Spontaneous
  Country: US (occurrence: US)
  Receive Date: 20200228
  Receipt Date: 20200228
  Transmission Date: 20200409
  Serious: No
  Sender: FDA-Public Use
  Company Number: US-009507513-2002USA010649

PATIENT
  Age: 30 Year
  Sex: Female
  Weight: 111.13 kg

DRUGS (2)
  1. NEXPLANON [Suspect]
     Active Substance: ETONOGESTREL
     Dosage: 1 ROD
     Route: 059
     Dates: start: 20200225
  2. NEXPLANON [Suspect]
     Active Substance: ETONOGESTREL
     Dosage: 1 ROD
     Route: 059
     Dates: start: 20200225, end: 20200225

REACTIONS (4)
  - Device expulsion [Unknown]
  - Complication of device insertion [Unknown]
  - Product administered at inappropriate site [Unknown]
  - Product quality issue [Unknown]

NARRATIVE: CASE EVENT DATE: 20200225
